FAERS Safety Report 15709983 (Version 1)
Quarter: 2018Q4

REPORT INFORMATION
  Report Type: Spontaneous
  Country: US (occurrence: US)
  Receive Date: 20181211
  Receipt Date: 20181211
  Transmission Date: 20190205
  Serious: No
  Sender: FDA-Public Use
  Company Number: US-US WORLDMEDS, LLC-USW201810-001459

PATIENT
  Sex: Female

DRUGS (1)
  1. LUCEMYRA [Suspect]
     Active Substance: LOFEXIDINE

REACTIONS (1)
  - Dizziness [Unknown]
